FAERS Safety Report 17656056 (Version 3)
Quarter: 2020Q2

REPORT INFORMATION
  Report Type: Spontaneous
  Country: GB (occurrence: GB)
  Receive Date: 20200410
  Receipt Date: 20200523
  Transmission Date: 20200713
  Serious: Yes (Death, Disabling)
  Sender: FDA-Public Use
  Company Number: GB-TEVA-2020-GB-1221980

PATIENT
  Age: 59 Year
  Sex: Male

DRUGS (3)
  1. MOMETASONE [Concomitant]
     Active Substance: MOMETASONE
     Indication: NASAL CONGESTION
     Dosage: 50MCG, EACH NOSTRIL
     Route: 045
     Dates: start: 20200310
  2. DOXYCYCLINE. [Suspect]
     Active Substance: DOXYCYCLINE
     Dosage: WITH THE FIRST DOSE TO BE A DOUBLE DOSE; 200MG
     Dates: start: 20200316, end: 20200316
  3. DOXYCYCLINE. [Suspect]
     Active Substance: DOXYCYCLINE
     Indication: COUGH
     Dosage: 100MG
     Dates: start: 20200317

REACTIONS (8)
  - Chest discomfort [Fatal]
  - Drug ineffective [Fatal]
  - Dysstasia [Fatal]
  - Hyperhidrosis [Fatal]
  - Myocardial infarction [Fatal]
  - Myalgia [Fatal]
  - Malaise [Fatal]
  - Body temperature decreased [Fatal]

NARRATIVE: CASE EVENT DATE: 20200316
